FAERS Safety Report 10544226 (Version 2)
Quarter: 2014Q4

REPORT INFORMATION
  Report Type: Report from Study
  Country: US (occurrence: US)
  Receive Date: 20141027
  Receipt Date: 20141106
  Transmission Date: 20150529
  Serious: Yes (Other)
  Sender: FDA-Public Use
  Company Number: US-SA-2014SA142211

PATIENT
  Age: 63 Year
  Sex: Male

DRUGS (7)
  1. LANTUS [Suspect]
     Active Substance: INSULIN GLARGINE
     Indication: DIABETES MELLITUS
     Dosage: DOSE:50 UNIT(S)
     Route: 065
     Dates: end: 20141010
  2. NOVOLOG [Suspect]
     Active Substance: INSULIN ASPART
     Dosage: DOSE : DOSE HAVE GOTTEN LARGER
     Route: 065
  3. LANTUS [Suspect]
     Active Substance: INSULIN GLARGINE
     Indication: DIABETES MELLITUS
     Dosage: DOSE:27 UNIT(S)
     Route: 065
     Dates: start: 20141011, end: 20141011
  4. LANTUS [Suspect]
     Active Substance: INSULIN GLARGINE
     Indication: DIABETES MELLITUS
     Dosage: DOSE:36 UNIT(S)
     Route: 065
     Dates: start: 2003
  5. LANTUS [Suspect]
     Active Substance: INSULIN GLARGINE
     Indication: DIABETES MELLITUS
     Dosage: DOSE:52 UNIT(S)
     Route: 065
     Dates: start: 201408
  6. NOVOLOG [Suspect]
     Active Substance: INSULIN ASPART
     Dosage: DOSE : HAVE GRADUALLY GOTTEN LARGER
     Route: 065
     Dates: start: 2003
  7. NOVOLOG [Suspect]
     Active Substance: INSULIN ASPART
     Dosage: DOSE:36 UNIT(S)
     Route: 065

REACTIONS (4)
  - Wrong drug administered [Unknown]
  - Weight increased [Recovering/Resolving]
  - Surgery [Unknown]
  - Blood glucose increased [Unknown]

NARRATIVE: CASE EVENT DATE: 201401
